FAERS Safety Report 7965374-3 (Version None)
Quarter: 2011Q4

REPORT INFORMATION
  Report Type: 
  Country: None (occurrence: None)
  Receive Date: 20111208
  Receipt Date: 20111204
  Transmission Date: 20120403
  Serious: Yes (Hospitalization, Other)
  Sender: FDA-Public Use
  Company Number: IQ-SANOFI-AVENTIS-2011SA079662

PATIENT
  Age: 51 Year
  Sex: Male
  Weight: 80 kg

DRUGS (10)
  1. ENOXAPARIN SODIUM [Suspect]
     Route: 058
     Dates: start: 20111123, end: 20111123
  2. METOPROLOL TARTRATE [Suspect]
     Route: 048
     Dates: start: 20111121
  3. HEPARIN [Concomitant]
     Route: 042
     Dates: start: 20111121, end: 20111123
  4. DIAZEPAM [Concomitant]
     Indication: ANXIETY
     Route: 048
     Dates: start: 20111121, end: 20111121
  5. ASPIRIN [Concomitant]
     Route: 048
     Dates: start: 20111121
  6. MEPERIDINE HCL [Concomitant]
     Route: 042
     Dates: start: 20111121, end: 20111121
  7. PLAVIX [Concomitant]
     Route: 048
     Dates: start: 20111121
  8. GLYCERYL TRINITRATE [Suspect]
     Route: 060
     Dates: start: 20111121
  9. METOCLOPRAMIDE HYDROCHLORIDE [Concomitant]
     Indication: NAUSEA
     Route: 042
     Dates: start: 20111121, end: 20111121
  10. HEPARIN [Concomitant]
     Route: 042
     Dates: start: 20111124, end: 20111126

REACTIONS (3)
  - HYPERHIDROSIS [None]
  - SOMNOLENCE [None]
  - ASTHENIA [None]
